FAERS Safety Report 6574972-3 (Version None)
Quarter: 2010Q1

REPORT INFORMATION
  Report Type: 
  Country: None (occurrence: None)
  Receive Date: 20100209
  Receipt Date: 20100129
  Transmission Date: 20100710
  Serious: Yes (Hospitalization)
  Sender: FDA-Public Use
  Company Number: IT-NOVOPROD-302203

PATIENT
  Age: 57 Year
  Sex: Male

DRUGS (5)
  1. NOVOLOG [Suspect]
     Indication: DIABETES MELLITUS
     Dosage: 41 IU, QD
     Route: 058
     Dates: start: 20080914
  2. LANTUS [Suspect]
     Indication: DIABETES MELLITUS
     Dosage: 24 IU, QD
     Route: 058
     Dates: start: 20080916
  3. TRIATEC                            /00116401/ [Concomitant]
  4. REXTAT [Concomitant]
  5. ASPIRIN [Concomitant]
     Dosage: 100 MG, QD

REACTIONS (2)
  - HYPOGLYCAEMIA [None]
  - SOPOR [None]
